FAERS Safety Report 10309940 (Version 1)
Quarter: 2014Q3

REPORT INFORMATION
  Report Type: Spontaneous
  Country: US (occurrence: None)
  Receive Date: 20140715
  Receipt Date: 20140715
  Transmission Date: 20150326
  Serious: Yes (Other)
  Sender: FDA-Public Use
  Company Number: None

PATIENT
  Age: 54 Year
  Sex: Female
  Weight: 50.8 kg

DRUGS (1)
  1. CEPHALEXIN. [Suspect]
     Active Substance: CEPHALEXIN
     Indication: SURGERY
     Dosage: ONE CAPSULE  TWICE DAILY TAKEN BY MOUTH
     Route: 048
     Dates: start: 20140709, end: 20140713

REACTIONS (3)
  - Oropharyngeal pain [None]
  - Gastrointestinal disorder [None]
  - Oral candidiasis [None]

NARRATIVE: CASE EVENT DATE: 20140713
